FAERS Safety Report 24387849 (Version 2)
Quarter: 2024Q4

REPORT INFORMATION
  Report Type: Spontaneous
  Country: US (occurrence: US)
  Receive Date: 20241002
  Receipt Date: 20241007
  Transmission Date: 20250115
  Serious: Yes (Hospitalization)
  Sender: AMGEN
  Company Number: US-AMGEN-USASP2024193579

PATIENT
  Age: 16 Year
  Sex: Male

DRUGS (4)
  1. BLINCYTO [Suspect]
     Active Substance: BLINATUMOMAB
     Indication: Acute lymphocytic leukaemia recurrent
     Dosage: 15 MICROGRAM/SQ. METER, QD
     Route: 065
  2. BLINCYTO [Suspect]
     Active Substance: BLINATUMOMAB
     Dosage: 5 MICROGRAM/SQ. METER, QD
     Route: 065
  3. BLINCYTO [Suspect]
     Active Substance: BLINATUMOMAB
     Dosage: 15 MICROGRAM, QD
     Route: 065
  4. DECADRON [Concomitant]
     Active Substance: DEXAMETHASONE

REACTIONS (2)
  - Cytokine release syndrome [Recovered/Resolved]
  - Pain [Recovered/Resolved]
